FAERS Safety Report 17807945 (Version 2)
Quarter: 2020Q3

REPORT INFORMATION
  Report Type: Spontaneous
  Country: US (occurrence: US)
  Receive Date: 20200520
  Receipt Date: 20200813
  Transmission Date: 20201102
  Serious: Yes (Death, Hospitalization, Other)
  Sender: FDA-Public Use
  Company Number: US-009507513-2005USA005611

PATIENT
  Sex: Male
  Weight: 94.79 kg

DRUGS (3)
  1. PRINIVIL [Concomitant]
     Active Substance: LISINOPRIL
     Dosage: ONE TABLET BY MOUTH ONCE DAILY
     Route: 048
  2. METFORMIN [Concomitant]
     Active Substance: METFORMIN HYDROCHLORIDE
     Dosage: ONE TABLET TWICE DAILY BY MOUTH
     Route: 048
  3. JANUVIA [Suspect]
     Active Substance: SITAGLIPTIN PHOSPHATE
     Dosage: 50 MILLIGRAM, QD
     Route: 048
     Dates: start: 20150821, end: 201704

REACTIONS (32)
  - Death [Fatal]
  - Renal cell carcinoma [Unknown]
  - Pneumonia [Unknown]
  - Bladder disorder [Unknown]
  - Prostatic calcification [Unknown]
  - Gastrointestinal wall thickening [Unknown]
  - Gastrointestinal haemorrhage [Unknown]
  - Tonsil cancer [Unknown]
  - Arteriosclerosis [Unknown]
  - Spinal osteoarthritis [Unknown]
  - Device related thrombosis [Unknown]
  - Pulmonary fibrosis [Unknown]
  - Acute kidney injury [Unknown]
  - Prostatomegaly [Unknown]
  - Vomiting [Recovering/Resolving]
  - Pancreatic carcinoma metastatic [Unknown]
  - Stent placement [Unknown]
  - Abdominal discomfort [Unknown]
  - Diabetes mellitus inadequate control [Unknown]
  - Bronchiolitis [Unknown]
  - Gynaecomastia [Unknown]
  - Cholelithiasis [Unknown]
  - Abdominal wound dehiscence [Unknown]
  - Pulmonary mass [Unknown]
  - Flatulence [Unknown]
  - Diarrhoea [Recovering/Resolving]
  - Back pain [Unknown]
  - Pericardial effusion [Unknown]
  - Gastrointestinal disorder [Unknown]
  - Pain [Unknown]
  - Nausea [Recovering/Resolving]
  - Abdominal pain [Unknown]

NARRATIVE: CASE EVENT DATE: 2017
